FAERS Safety Report 24528543 (Version 1)
Quarter: 2024Q4

REPORT INFORMATION
  Report Type: Spontaneous
  Country: US (occurrence: None)
  Receive Date: 20241019
  Receipt Date: 20241019
  Transmission Date: 20250115
  Serious: Yes (Death)
  Sender: Public
  Company Number: None

PATIENT
  Age: 58 Year
  Sex: Female
  Weight: 41 kg

DRUGS (2)
  1. NIVOLUMAB [Suspect]
     Active Substance: NIVOLUMAB
     Dates: end: 20231201
  2. CABOZANTINIB [Suspect]
     Active Substance: CABOZANTINIB
     Dates: end: 20231201

REACTIONS (10)
  - Sepsis [None]
  - Metastatic renal cell carcinoma [None]
  - Hypotension [None]
  - Tachycardia [None]
  - Renal impairment [None]
  - Pleural effusion [None]
  - Nausea [None]
  - Catheter site pain [None]
  - Catheter site discharge [None]
  - Cough [None]

NARRATIVE: CASE EVENT DATE: 20231201
